FAERS Safety Report 12330265 (Version 1)
Quarter: 2016Q2

REPORT INFORMATION
  Report Type: Spontaneous
  Country: IN (occurrence: IN)
  Receive Date: 20160504
  Receipt Date: 20160504
  Transmission Date: 20160815
  Serious: Yes (Death, Other)
  Sender: FDA-Public Use
  Company Number: IN-009507513-1605IND000879

PATIENT
  Age: 65 Year
  Sex: Male

DRUGS (1)
  1. JANUVIA [Suspect]
     Active Substance: SITAGLIPTIN PHOSPHATE
     Indication: DIABETES MELLITUS
     Dosage: 1 TABLET ONCE PER DAY(QD)
     Route: 048

REACTIONS (1)
  - Myocardial infarction [Fatal]
